FAERS Safety Report 8772689 (Version 1)
Quarter: 2012Q4

REPORT INFORMATION
  Report Type: 
  Country: US (occurrence: US)
  Receive Date: 20120905
  Receipt Date: 20120905
  Transmission Date: 20130627
  Serious: Yes (Other)
  Sender: FDA-Public Use
  Company Number: US-JNJFOC-20120814806

PATIENT
  Age: 49 Year
  Sex: Female
  Weight: 77.11 kg

DRUGS (2)
  1. ZYRTEC IR [Suspect]
     Indication: HYPERSENSITIVITY
     Dosage: 1 tablet at night
     Route: 048
  2. ZYRTEC IR [Suspect]
     Indication: HYPERSENSITIVITY
     Dosage: 1 tablet every 4 to 5 days
     Route: 048

REACTIONS (4)
  - Withdrawal syndrome [Not Recovered/Not Resolved]
  - Pruritus [None]
  - Scab [None]
  - Economic problem [None]
